FAERS Safety Report 7139306-4 (Version None)
Quarter: 2010Q4

REPORT INFORMATION
  Report Type: 
  Country: None (occurrence: None)
  Receive Date: 20101206
  Receipt Date: 20101022
  Transmission Date: 20110411
  Serious: No
  Sender: FDA-Public Use
  Company Number: A0889612A

PATIENT
  Sex: Female

DRUGS (2)
  1. LAMICTAL [Suspect]
     Route: 065
     Dates: start: 20100101
  2. LITHIUM [Concomitant]

REACTIONS (2)
  - ADVERSE DRUG REACTION [None]
  - DRUG ADMINISTRATION ERROR [None]
